FAERS Safety Report 17900239 (Version 1)
Quarter: 2020Q2

REPORT INFORMATION
  Report Type: Spontaneous
  Country: US (occurrence: US)
  Receive Date: 20200616
  Receipt Date: 20200616
  Transmission Date: 20200714
  Serious: No
  Sender: FDA-Public Use
  Company Number: US-GLENMARK PHARMACEUTICALS-2020GMK047210

PATIENT

DRUGS (1)
  1. PIMECROLIMUS CREAM, 1% [Suspect]
     Active Substance: PIMECROLIMUS
     Indication: FUNGAL SKIN INFECTION
     Dosage: UNK, BID (MORNING AND NIGHT)
     Route: 061
     Dates: start: 20200310

REACTIONS (2)
  - Wrong technique in product usage process [Unknown]
  - Product use in unapproved indication [Unknown]

NARRATIVE: CASE EVENT DATE: 20200310
